FAERS Safety Report 4867138-6 (Version None)
Quarter: 2005Q4

REPORT INFORMATION
  Report Type: 
  Country: None (occurrence: None)
  Receive Date: 20051222
  Receipt Date: 20051213
  Transmission Date: 20060501
  Serious: Yes (Hospitalization)
  Sender: FDA-Public Use
  Company Number: 220309

PATIENT
  Age: 59 Year
  Sex: Male
  Weight: 100.5 kg

DRUGS (1)
  1. XOLAIR [Suspect]
     Indication: ASTHMA
     Dosage: 300 MG, Q2W, SUBCUTANEOUS
     Route: 058
     Dates: start: 20050324, end: 20051213

REACTIONS (3)
  - ASTHMA [None]
  - COUGH [None]
  - PHARMACEUTICAL PRODUCT COMPLAINT [None]
